FAERS Safety Report 12505174 (Version 1)
Quarter: 2016Q2

REPORT INFORMATION
  Report Type: Spontaneous
  Country: PK (occurrence: PK)
  Receive Date: 20160628
  Receipt Date: 20160628
  Transmission Date: 20160815
  Serious: Yes (Other)
  Sender: FDA-Public Use
  Company Number: PK-GLAXOSMITHKLINE-PK2016GSK091332

PATIENT
  Age: 41 Year
  Sex: Female

DRUGS (1)
  1. CAFLAM [Suspect]
     Active Substance: DICLOFENAC POTASSIUM
     Indication: MUSCULOSKELETAL PAIN
     Dosage: UNK, QD
     Route: 048
     Dates: start: 20160617

REACTIONS (3)
  - Pruritus generalised [Recovering/Resolving]
  - Abdominal pain lower [Recovering/Resolving]
  - Loss of consciousness [Recovering/Resolving]
